FAERS Safety Report 7546483-X (Version None)
Quarter: 2011Q2

REPORT INFORMATION
  Report Type: 
  Country: None (occurrence: None)
  Receive Date: 20110614
  Receipt Date: 20110528
  Transmission Date: 20111010
  Serious: No
  Sender: FDA-Public Use
  Company Number: US-B.I. PHARMACEUTICALS,INC./RIDGEFIELD-2011-BP-14625BP

PATIENT
  Sex: Female

DRUGS (4)
  1. SPIRIVA [Suspect]
     Indication: BRONCHITIS
  2. SPIRIVA [Suspect]
     Indication: EMPHYSEMA
  3. ESTRADIOL [Concomitant]
     Indication: HOT FLUSH
     Dosage: 0.5 MG
     Route: 048
     Dates: start: 19900101
  4. SPIRIVA [Suspect]
     Indication: CHRONIC OBSTRUCTIVE PULMONARY DISEASE
     Dosage: 18 MCG
     Route: 055
     Dates: start: 20110404

REACTIONS (10)
  - DRY MOUTH [None]
  - OROPHARYNGEAL PAIN [None]
  - DYSPEPSIA [None]
  - CONSTIPATION [None]
  - DYSPHONIA [None]
  - HEART RATE INCREASED [None]
  - DYSPNOEA [None]
  - ACTIVITIES OF DAILY LIVING IMPAIRED [None]
  - DRUG INEFFECTIVE [None]
  - CHEST PAIN [None]
